FAERS Safety Report 18362901 (Version 1)
Quarter: 2020Q4

REPORT INFORMATION
  Report Type: Report from Study
  Country: US (occurrence: US)
  Receive Date: 20201008
  Receipt Date: 20201008
  Transmission Date: 20210114
  Serious: No
  Sender: FDA-Public Use
  Company Number: NVSC2020US272100

PATIENT
  Age: 40 Year
  Sex: Female

DRUGS (1)
  1. ENTRESTO [Suspect]
     Active Substance: SACUBITRIL\VALSARTAN
     Indication: CARDIAC FAILURE
     Dosage: 1 DF, BID (DOSE: 50 MG (24/26) TWICE IN A DAY
     Route: 048
     Dates: start: 20200630

REACTIONS (1)
  - Cough [Unknown]

NARRATIVE: CASE EVENT DATE: 20200923
